FAERS Safety Report 8479191-1 (Version None)
Quarter: 2012Q2

REPORT INFORMATION
  Report Type: 
  Country: None (occurrence: None)
  Receive Date: 20120629
  Receipt Date: 20120619
  Transmission Date: 20120825
  Serious: Yes (Hospitalization)
  Sender: FDA-Public Use
  Company Number: JP-CELGENEUS-087-50794-12063521

PATIENT
  Sex: Female

DRUGS (9)
  1. KYTRIL [Concomitant]
     Route: 065
     Dates: start: 20120113, end: 20120119
  2. VIDAZA [Suspect]
     Indication: MYELODYSPLASTIC SYNDROME
     Dosage: 75 MILLIGRAM/SQ. METER
     Route: 041
     Dates: start: 20120113, end: 20120119
  3. VIDAZA [Suspect]
     Dosage: 75 MILLIGRAM/SQ. METER
     Route: 041
     Dates: start: 20120301, end: 20120307
  4. ALLEGRA [Concomitant]
     Route: 065
     Dates: start: 20120120, end: 20120130
  5. CRAVIT [Concomitant]
     Route: 065
     Dates: start: 20120302, end: 20120405
  6. OMEPRAZOLE [Concomitant]
     Route: 065
  7. FUNGIZONE [Concomitant]
     Route: 065
     Dates: start: 20120227, end: 20120331
  8. PROGRAF [Concomitant]
     Route: 065
  9. PREDNISOLONE [Concomitant]
     Route: 065

REACTIONS (6)
  - PLATELET COUNT DECREASED [None]
  - HAEMORRHAGIC DIATHESIS [None]
  - THROMBOCYTOPENIA [None]
  - FEBRILE NEUTROPENIA [None]
  - RASH [None]
  - NEUTROPHIL COUNT DECREASED [None]
